FAERS Safety Report 8819305 (Version 4)
Quarter: 2013Q2

REPORT INFORMATION
  Report Type: Spontaneous
  Country: US (occurrence: US)
  Receive Date: 20121001
  Receipt Date: 20130412
  Transmission Date: 20140414
  Serious: Yes (Hospitalization)
  Sender: FDA-Public Use
  Company Number: US-BAYER-2012-101498

PATIENT
  Age: 41 Year
  Sex: Female
  Weight: 64.85 kg

DRUGS (7)
  1. YASMIN [Suspect]
     Indication: CONTRACEPTION
     Dosage: UNK
     Dates: start: 200312, end: 200911
  2. BENADRYL [Concomitant]
     Dosage: 25 MG, UNK
     Route: 042
  3. ALPRAZOLAM [Concomitant]
     Indication: ANXIETY
     Dosage: 0.25 MG, PRN
     Route: 048
     Dates: start: 20091126
  4. ALPRAZOLAM [Concomitant]
     Indication: PALPITATIONS
  5. VITAMIN C [Concomitant]
     Dosage: DAILY
  6. ANTIBIOTICS [Concomitant]
  7. XANAX [Concomitant]

REACTIONS (9)
  - Pulmonary embolism [Not Recovered/Not Resolved]
  - Deep vein thrombosis [Not Recovered/Not Resolved]
  - Thrombosis [Not Recovered/Not Resolved]
  - Injury [Not Recovered/Not Resolved]
  - Pain [None]
  - Emotional distress [None]
  - Asthma [None]
  - Anxiety [None]
  - Pre-eclampsia [None]
